FAERS Safety Report 6358956-6 (Version None)
Quarter: 2009Q3

REPORT INFORMATION
  Report Type: 
  Country: None (occurrence: None)
  Receive Date: 20090914
  Receipt Date: 20090902
  Transmission Date: 20100115
  Serious: Yes (Hospitalization)
  Sender: FDA-Public Use
  Company Number: 2009AL005849

PATIENT
  Sex: Male

DRUGS (4)
  1. DIAZEPAM TAB [Suspect]
     Indication: DRUG EXPOSURE DURING PREGNANCY
     Dosage: 2.5 MG; QD; TRPL
     Route: 064
     Dates: start: 20090628, end: 20090728
  2. OXAZEPAM [Suspect]
     Indication: DRUG EXPOSURE DURING PREGNANCY
     Dosage: 45 MG;QD;TRPL
     Route: 064
     Dates: start: 20090628, end: 20090728
  3. LERGIGAN [Concomitant]
  4. INDERAL [Concomitant]

REACTIONS (4)
  - CAESAREAN SECTION [None]
  - HYPERVENTILATION [None]
  - MATERNAL DRUGS AFFECTING FOETUS [None]
  - NEONATAL RESPIRATORY DEPRESSION [None]
